FAERS Safety Report 15001402 (Version 1)
Quarter: 2018Q2

REPORT INFORMATION
  Report Type: Spontaneous
  Country: DE (occurrence: DE)
  Receive Date: 20180612
  Receipt Date: 20180612
  Transmission Date: 20180711
  Serious: Yes (Other)
  Sender: FDA-Public Use
  Company Number: DE-PFIZER INC-2018234820

PATIENT
  Age: 51 Year
  Sex: Female

DRUGS (4)
  1. METHADONE [Concomitant]
     Active Substance: METHADONE HYDROCHLORIDE
     Route: 065
  2. MIRTAZAPINE. [Concomitant]
     Active Substance: MIRTAZAPINE
     Route: 065
  3. LEVETIRACETAM. [Suspect]
     Active Substance: LEVETIRACETAM
     Indication: EPILEPSY
     Dosage: 1000 MG, 1X/DAY
     Route: 048
  4. PAROXETINE. [Concomitant]
     Active Substance: PAROXETINE
     Route: 065

REACTIONS (4)
  - Balance disorder [Unknown]
  - Optic nerve injury [Unknown]
  - Visual impairment [Unknown]
  - Dizziness [Unknown]
